FAERS Safety Report 6179079-5 (Version None)
Quarter: 2009Q2

REPORT INFORMATION
  Report Type: 
  Country: None (occurrence: None)
  Receive Date: 20090505
  Receipt Date: 20090427
  Transmission Date: 20091009
  Serious: Yes (Death)
  Sender: FDA-Public Use
  Company Number: FR-ASTRAZENECA-1997AS00683

PATIENT
  Age: 43 Year
  Sex: Female

DRUGS (6)
  1. LIDOCAINE HCL IN PLASTIC CONTAINER [Suspect]
     Route: 058
     Dates: start: 19961130
  2. HEPTAMINOL [Concomitant]
     Route: 048
     Dates: start: 19961123, end: 19961130
  3. AMITRIPTYLINE HYDROCHLORIDE [Concomitant]
     Route: 048
     Dates: start: 19961123, end: 19961127
  4. NIFLUMIC ACID [Concomitant]
     Route: 048
     Dates: start: 19961124, end: 19961130
  5. MISOPROSTOL [Concomitant]
     Route: 048
     Dates: start: 19961123, end: 19961130
  6. CLORAZEPATE DIPOTASSIUM [Concomitant]
     Route: 048
     Dates: start: 19961123, end: 19961130

REACTIONS (3)
  - CARDIAC ARREST [None]
  - CONVULSION [None]
  - HYPERTHERMIA MALIGNANT [None]
